FAERS Safety Report 21223930 (Version 1)
Quarter: 2022Q3

REPORT INFORMATION
  Report Type: Spontaneous
  Country: US (occurrence: US)
  Receive Date: 20220817
  Receipt Date: 20220817
  Transmission Date: 20221026
  Serious: No
  Sender: FDA-Public Use
  Company Number: US-BIOGEN-2022BI01135943

PATIENT
  Sex: Female

DRUGS (1)
  1. TECFIDERA [Suspect]
     Active Substance: DIMETHYL FUMARATE
     Indication: Multiple sclerosis
     Route: 050
     Dates: start: 2017

REACTIONS (8)
  - Sensitive skin [Unknown]
  - Onychomadesis [Unknown]
  - Multiple sclerosis relapse [Unknown]
  - Flushing [Unknown]
  - Alopecia [Unknown]
  - Fatigue [Unknown]
  - Panic attack [Unknown]
  - Dry skin [Unknown]
